FAERS Safety Report 23990244 (Version 1)
Quarter: 2024Q2

REPORT INFORMATION
  Report Type: Spontaneous
  Country: US (occurrence: US)
  Receive Date: 20240619
  Receipt Date: 20240619
  Transmission Date: 20240716
  Serious: Yes (Hospitalization)
  Sender: FDA-Public Use
  Company Number: US-Calliditas-2024CAL01055

PATIENT
  Age: 19 Year
  Sex: Male
  Weight: 126.5 kg

DRUGS (3)
  1. TARPEYO [Suspect]
     Active Substance: BUDESONIDE
     Indication: IgA nephropathy
     Route: 048
     Dates: start: 20240503
  2. IRON [Concomitant]
     Active Substance: IRON
  3. PREDNISONE [Concomitant]
     Active Substance: PREDNISONE
     Dosage: CHANGED TO 10 MG

REACTIONS (2)
  - Product dose omission issue [Unknown]
  - Hospitalisation [Unknown]
